FAERS Safety Report 9917297 (Version 2)
Quarter: 2014Q1

REPORT INFORMATION
  Report Type: Spontaneous
  Country: US (occurrence: US)
  Receive Date: 20140221
  Receipt Date: 20140228
  Transmission Date: 20141002
  Serious: Yes (Hospitalization)
  Sender: FDA-Public Use
  Company Number: US-PURDUE-USA-2014-0111350

PATIENT
  Sex: Female

DRUGS (2)
  1. OXYCONTIN (NDA 22-272) [Suspect]
     Indication: MUSCULOSKELETAL PAIN
     Dosage: 40 MG, BID
     Route: 048
  2. OXYCONTIN (NDA 22-272) [Suspect]
     Indication: BACK PAIN

REACTIONS (3)
  - Localised infection [Not Recovered/Not Resolved]
  - Fall [Unknown]
  - Splinter [Unknown]
